FAERS Safety Report 5513360-5 (Version None)
Quarter: 2007Q4

REPORT INFORMATION
  Report Type: 
  Country: None (occurrence: None)
  Receive Date: 20071112
  Receipt Date: 20071031
  Transmission Date: 20080405
  Serious: Yes (Death)
  Sender: FDA-Public Use
  Company Number: FR-PFIZER INC-2006113873

PATIENT
  Sex: Male
  Weight: 60 kg

DRUGS (12)
  1. SU-011,248 [Suspect]
     Indication: RENAL CELL CARCINOMA STAGE UNSPECIFIED
     Route: 048
     Dates: start: 20060107, end: 20060203
  2. SU-011,248 [Suspect]
     Route: 048
     Dates: start: 20060218, end: 20060623
  3. RABEPRAZOLE SODIUM [Concomitant]
     Route: 048
  4. GELOX [Concomitant]
     Route: 048
     Dates: start: 20060317
  5. MACROGOL [Concomitant]
     Route: 048
     Dates: start: 20060317
  6. FENTANYL [Concomitant]
     Route: 062
     Dates: start: 20060519
  7. MORPHINE SULFATE [Concomitant]
     Route: 048
     Dates: start: 20060512
  8. PREDNISONE [Concomitant]
     Route: 048
     Dates: start: 20060512
  9. OMEPRAZOLE [Concomitant]
     Route: 048
     Dates: start: 20060512
  10. POTASSIUM CHLORIDE [Concomitant]
     Route: 048
     Dates: start: 20060512
  11. PARACETAMOL [Concomitant]
     Route: 048
     Dates: start: 20060512
  12. CHLORPROMAZINE [Concomitant]
     Route: 048
     Dates: start: 20060519

REACTIONS (1)
  - PERFORMANCE STATUS DECREASED [None]
